FAERS Safety Report 6221957-2 (Version None)
Quarter: 2009Q2

REPORT INFORMATION
  Report Type: 
  Country: None (occurrence: None)
  Receive Date: 20090608
  Receipt Date: 20090608
  Transmission Date: 20091009
  Serious: Yes (Life-Threatening)
  Sender: FDA-Public Use
  Company Number: None

PATIENT
  Sex: Male
  Weight: 115 kg

DRUGS (1)
  1. IBUTILIDE FUMARATE 0.1 MG/ML SOLN 05/24/2009 [Suspect]
     Dosage: 1 MG/10 ML STAT IV
     Route: 042
     Dates: start: 20090524

REACTIONS (1)
  - TORSADE DE POINTES [None]
